FAERS Safety Report 7068621-8 (Version None)
Quarter: 2010Q4

REPORT INFORMATION
  Report Type: 
  Country: None (occurrence: None)
  Receive Date: 20101027
  Receipt Date: 20101027
  Transmission Date: 20110411
  Serious: Yes (Hospitalization)
  Sender: FDA-Public Use
  Company Number: None

PATIENT
  Age: 16 Month
  Sex: Male
  Weight: 10.4327 kg

DRUGS (1)
  1. TEETHING TABLETS HYLAND'S INC [Suspect]
     Indication: TEETHING
     Dosage: 3 TABLETS 4 TIMES A DAY PO
     Route: 048
     Dates: start: 20100601, end: 20101014

REACTIONS (4)
  - CONVULSION [None]
  - INFLUENZA [None]
  - MENINGITIS [None]
  - PNEUMONIA [None]
